FAERS Safety Report 7707337-9 (Version None)
Quarter: 2011Q3

REPORT INFORMATION
  Report Type: 
  Country: None (occurrence: None)
  Receive Date: 20110824
  Receipt Date: 20110819
  Transmission Date: 20111222
  Serious: Yes (Hospitalization, Other)
  Sender: FDA-Public Use
  Company Number: US-ABBOTT-11P-163-0848150-00

PATIENT
  Sex: Female
  Weight: 55.388 kg

DRUGS (4)
  1. ELAVIL [Concomitant]
     Indication: DEPRESSION
  2. HUMIRA [Suspect]
     Route: 058
     Dates: start: 20110805
  3. COMPAZINE [Suspect]
     Indication: NAUSEA
     Dates: start: 20110501, end: 20110501
  4. HUMIRA [Suspect]
     Indication: PSORIATIC ARTHROPATHY
     Route: 058
     Dates: start: 20100801, end: 20110101

REACTIONS (15)
  - BRONCHITIS [None]
  - WEIGHT DECREASED [None]
  - JOINT SWELLING [None]
  - IMPAIRED GASTRIC EMPTYING [None]
  - VOMITING [None]
  - PSORIATIC ARTHROPATHY [None]
  - PRURITUS [None]
  - PSORIASIS [None]
  - DYSKINESIA [None]
  - ABDOMINAL PAIN UPPER [None]
  - IMMUNODEFICIENCY [None]
  - STAPHYLOCOCCAL INFECTION [None]
  - NAUSEA [None]
  - BLOOD PRESSURE INCREASED [None]
  - SWOLLEN TONGUE [None]
